FAERS Safety Report 5318199-1 (Version None)
Quarter: 2007Q2

REPORT INFORMATION
  Report Type: 
  Country: None (occurrence: None)
  Receive Date: 20070507
  Receipt Date: 20070227
  Transmission Date: 20071010
  Serious: Yes (Hospitalization, Other)
  Sender: FDA-Public Use
  Company Number: GR-ELI_LILLY_AND_COMPANY-GR200703000015

PATIENT
  Age: 39 Year
  Sex: Female
  Weight: 117 kg

DRUGS (7)
  1. LANTUS [Suspect]
     Indication: DIABETES MELLITUS NON-INSULIN-DEPENDENT
     Dosage: 58 U, DAILY (1/D)
     Route: 058
     Dates: start: 20070220
  2. LANTUS [Suspect]
     Dosage: UNK, UNK
     Dates: start: 20060523
  3. DIOVAN [Concomitant]
     Indication: HYPERTENSION
     Dosage: UNK, UNK
     Dates: start: 20020101
  4. CARVEDILOL [Concomitant]
     Indication: HYPERTENSION
     Dosage: UNK, UNK
     Dates: start: 20020101
  5. GLUCOPHAGE [Concomitant]
     Indication: DIABETES MELLITUS
     Dosage: UNK, UNK
     Dates: start: 20040101
  6. LISPRO [Suspect]
     Indication: DIABETES MELLITUS NON-INSULIN-DEPENDENT
     Dosage: 52 U, DAILY (1/D)
     Route: 058
     Dates: start: 20070220
  7. LISPRO [Suspect]
     Dates: start: 20060523

REACTIONS (1)
  - WEIGHT INCREASED [None]
